FAERS Safety Report 19517981 (Version 5)
Quarter: 2022Q1

REPORT INFORMATION
  Report Type: Spontaneous
  Country: JP (occurrence: JP)
  Receive Date: 20210712
  Receipt Date: 20220329
  Transmission Date: 20220424
  Serious: Yes (Hospitalization, Other)
  Sender: FDA-Public Use
  Company Number: NVSJ2021JP010431

PATIENT
  Age: 70 Year
  Sex: Male

DRUGS (3)
  1. TAFINLAR [Suspect]
     Active Substance: DABRAFENIB MESYLATE
     Indication: Lung adenocarcinoma stage IV
     Dosage: 300 MG, QD
     Route: 048
     Dates: start: 202104
  2. MEKINIST [Suspect]
     Active Substance: TRAMETINIB DIMETHYL SULFOXIDE
     Indication: Lung adenocarcinoma stage IV
     Dosage: 2 MG, QD
     Route: 048
     Dates: start: 202104
  3. LEVOFLOXACIN [Concomitant]
     Active Substance: LEVOFLOXACIN
     Indication: Antibiotic therapy
     Dosage: 500 MG, QD
     Route: 065

REACTIONS (9)
  - Aortic thrombosis [Recovering/Resolving]
  - Embolism [Unknown]
  - Renal infarct [Recovering/Resolving]
  - Splenic infarction [Recovering/Resolving]
  - Ileus paralytic [Unknown]
  - Pancreatitis acute [Unknown]
  - Lung adenocarcinoma stage IV [Unknown]
  - Malignant neoplasm progression [Unknown]
  - Pyrexia [Unknown]
